FAERS Safety Report 5476965-6 (Version None)
Quarter: 2007Q4

REPORT INFORMATION
  Report Type: 
  Country: None (occurrence: None)
  Receive Date: 20071002
  Receipt Date: 20071002
  Transmission Date: 20080405
  Serious: Yes (Other)
  Sender: FDA-Public Use
  Company Number: None

PATIENT
  Sex: Female
  Weight: 104.3273 kg

DRUGS (1)
  1. ROBATUSSIN DM [Suspect]
     Indication: COUGH
     Dosage: TOOK ONE ADULT DOSE  ONCE  PO
     Route: 048

REACTIONS (4)
  - DISSOCIATION [None]
  - FEAR [None]
  - HALLUCINATION [None]
  - MENTAL IMPAIRMENT [None]
